FAERS Safety Report 5871224-1 (Version None)
Quarter: 2008Q3

REPORT INFORMATION
  Report Type: 
  Country: None (occurrence: None)
  Receive Date: 20080829
  Receipt Date: 20071024
  Transmission Date: 20090109
  Serious: Yes (Hospitalization)
  Sender: FDA-Public Use
  Company Number: 2007-01037FE

PATIENT
  Age: 48 Year
  Sex: Male

DRUGS (3)
  1. GONADOTROPIN RELEASING HORMONE (GNRH) [Suspect]
     Indication: DIAGNOSTIC PROCEDURE
     Dosage: 100 MCG ONCE
     Route: 042
  2. THYROTROPHIN-RELEASING HORMONS ( ) (THYROTROPHIN-RELEASING HORMONE) [Suspect]
     Indication: DIAGNOSTIC PROCEDURE
     Dosage: 500 MCG ONCE
     Route: 042
  3. INSULIN ( ) (INSULIN) [Suspect]
     Indication: DIAGNOSTIC PROCEDURE
     Route: 042

REACTIONS (6)
  - BLINDNESS TRANSIENT [None]
  - HAEMORRHAGIC TUMOUR NECROSIS [None]
  - HYPOGLYCAEMIA [None]
  - PITUITARY HAEMORRHAGE [None]
  - PUPIL FIXED [None]
  - VISION BLURRED [None]
